FAERS Safety Report 6243723-4 (Version None)
Quarter: 2009Q2

REPORT INFORMATION
  Report Type: 
  Country: None (occurrence: None)
  Receive Date: 20090624
  Receipt Date: 20090618
  Transmission Date: 20091009
  Serious: Yes (Other)
  Sender: FDA-Public Use
  Company Number: US-SANOFI-SYNTHELABO-A03200902726

PATIENT
  Sex: Male

DRUGS (4)
  1. FLUOXETINE HCL [Concomitant]
     Indication: DEPRESSION
     Dosage: UNK
     Route: 065
  2. MIRTAZAPINE [Concomitant]
     Indication: TINNITUS
     Dosage: UNK
     Route: 065
  3. LORATADINE [Concomitant]
     Indication: SEASONAL ALLERGY
     Dosage: UNK
     Route: 065
  4. ZOLPIDEM [Suspect]
     Indication: SLEEP DISORDER
     Dosage: UNK
     Route: 048
     Dates: end: 20090513

REACTIONS (5)
  - AMNESIA [None]
  - MEDICATION ERROR [None]
  - MUSCLE STRAIN [None]
  - ROAD TRAFFIC ACCIDENT [None]
  - SOMNAMBULISM [None]
